FAERS Safety Report 6026173-5 (Version None)
Quarter: 2008Q4

REPORT INFORMATION
  Report Type: 
  Country: None (occurrence: None)
  Receive Date: 20081230
  Receipt Date: 20081215
  Transmission Date: 20090506
  Serious: Yes (Death, Hospitalization)
  Sender: FDA-Public Use
  Company Number: 2008-04635

PATIENT

DRUGS (1)
  1. VELCADE [Suspect]
     Indication: B-CELL LYMPHOMA

REACTIONS (2)
  - CHOLECYSTITIS [None]
  - MALIGNANT NEOPLASM PROGRESSION [None]
